FAERS Safety Report 9918636 (Version 2)
Quarter: 2014Q1

REPORT INFORMATION
  Report Type: Spontaneous
  Country: US (occurrence: US)
  Receive Date: 20140224
  Receipt Date: 20140224
  Transmission Date: 20141002
  Serious: Yes (Other)
  Sender: FDA-Public Use
  Company Number: US-GE HEALTHCARE MEDICAL DIAGNOSTICS-OSCN-PR-0809S-0544

PATIENT
  Age: 43 Year
  Sex: Male

DRUGS (12)
  1. OMNISCAN [Suspect]
     Indication: CONGENITAL CYSTIC KIDNEY DISEASE
     Dates: start: 20040908, end: 20040908
  2. OMNISCAN [Suspect]
     Indication: RENAL FAILURE
     Dates: start: 20060424, end: 20060424
  3. OMNISCAN [Suspect]
     Indication: HAEMATURIA
     Dates: start: 20060905, end: 20060905
  4. OMNISCAN [Suspect]
     Indication: BLOOD CREATININE INCREASED
     Dates: start: 20060906, end: 20060906
  5. OMNISCAN [Suspect]
     Indication: PYELONEPHRITIS ACUTE
  6. OMNISCAN [Suspect]
     Indication: RENAL VEIN THROMBOSIS
  7. GADOLINIUM (UNSPECIFIED) [Suspect]
     Indication: PRODUCT USED FOR UNKNOWN INDICATION
     Dates: start: 20051223, end: 20051223
  8. LIPITOR [Concomitant]
  9. COUMADIN [Concomitant]
  10. PROGRAF [Concomitant]
  11. CELLCEPT [Concomitant]
  12. PREDNISONE [Concomitant]

REACTIONS (1)
  - Nephrogenic systemic fibrosis [Not Recovered/Not Resolved]
